FAERS Safety Report 15359871 (Version 1)
Quarter: 2018Q4

REPORT INFORMATION
  Report Type: Spontaneous
  Country: IT (occurrence: IT)
  Receive Date: 20180907
  Receipt Date: 20180907
  Transmission Date: 20190204
  Serious: Yes (Hospitalization)
  Sender: FDA-Public Use
  Company Number: IT-TEVA-2018-IT-952325

PATIENT
  Age: 77 Year
  Sex: Male

DRUGS (8)
  1. PRADAXA [Suspect]
     Active Substance: DABIGATRAN ETEXILATE MESYLATE
     Indication: ATRIAL FIBRILLATION
     Route: 048
  2. DUROGESIC 75 MICROGRAMMI/ORA CEROTTO TRANSDERMICO [Concomitant]
     Active Substance: FENTANYL
     Route: 003
  3. AMIODARONE [Suspect]
     Active Substance: AMIODARONE
     Indication: ATRIAL FIBRILLATION
     Route: 048
  4. LASIX [Concomitant]
     Active Substance: FUROSEMIDE
     Route: 048
  5. LYRICA [Concomitant]
     Active Substance: PREGABALIN
     Route: 048
  6. CYMBALTA 60 MG HARD GASTRO-RESISTANT CAPSULES [Concomitant]
     Route: 048
  7. DEURSIL 300 MG CAPSULE RIGIDE [Concomitant]
     Route: 048
  8. NITRODERM TTS 15 MG/DIE CEROTTO TRANSDERMICO [Concomitant]
     Route: 003

REACTIONS (1)
  - Rectal haemorrhage [Unknown]

NARRATIVE: CASE EVENT DATE: 20171014
